FAERS Safety Report 8876366 (Version 6)
Quarter: 2014Q2

REPORT INFORMATION
  Report Type: Report from Study
  Country: AU (occurrence: AU)
  Receive Date: 20121031
  Receipt Date: 20140401
  Transmission Date: 20141212
  Serious: Yes (Hospitalization)
  Sender: FDA-Public Use
  Company Number: AU-BAYER-2012-103633

PATIENT
  Age: 64 Year
  Sex: Female
  Weight: 83.9 kg

DRUGS (3)
  1. REGORAFENIB [Suspect]
     Indication: COLORECTAL CANCER METASTATIC
     Dosage: 160 MG, QD
     Route: 048
     Dates: start: 20120918, end: 20120929
  2. CLEXANE [Concomitant]
     Indication: DEEP VEIN THROMBOSIS
     Dosage: 80 MG, DAILY
     Route: 058
     Dates: start: 2009, end: 20121001
  3. CYMBALTA [Concomitant]
     Indication: DEPRESSION
     Dosage: 6 MG, DAILY
     Route: 048
     Dates: start: 2009

REACTIONS (1)
  - Varices oesophageal [Recovered/Resolved with Sequelae]
